FAERS Safety Report 7691870-2 (Version None)
Quarter: 2011Q3

REPORT INFORMATION
  Report Type: 
  Country: None (occurrence: None)
  Receive Date: 20110818
  Receipt Date: 20110815
  Transmission Date: 20111222
  Serious: Yes (Hospitalization, Other)
  Sender: FDA-Public Use
  Company Number: US-TEVA-296639USA

PATIENT
  Age: 50 Year
  Sex: Male
  Weight: 55.07 kg

DRUGS (5)
  1. HYDROCODONE [Concomitant]
  2. ALPRAZOLAM [Suspect]
     Indication: ANXIETY
     Dosage: 5 MILLIGRAM;
  3. DIAZEPAM [Suspect]
     Dosage: 40 MILLIGRAM;
  4. DIAZEPAM [Suspect]
  5. HYDROMORPHONE HCL [Suspect]
     Indication: PAIN

REACTIONS (6)
  - EYE MOVEMENT DISORDER [None]
  - MYOCARDIAL INFARCTION [None]
  - INSOMNIA [None]
  - WEIGHT INCREASED [None]
  - FATIGUE [None]
  - TACHYCARDIA [None]
